FAERS Safety Report 17756186 (Version 1)
Quarter: 2020Q2

REPORT INFORMATION
  Report Type: Spontaneous
  Country: CN (occurrence: CN)
  Receive Date: 20200507
  Receipt Date: 20200507
  Transmission Date: 20200714
  Serious: Yes (Other)
  Sender: FDA-Public Use
  Company Number: CN-AZURITY PHARMACEUTICALS, INC.-2020SIL00021

PATIENT
  Age: 16 Month
  Sex: Male

DRUGS (7)
  1. MEROPENEM. [Concomitant]
     Active Substance: MEROPENEM
     Indication: OSTEOMYELITIS
     Dosage: 100 MG, EVERY 8 HOURS
  2. AZITHROMYCIN ANHYDROUS. [Concomitant]
     Active Substance: AZITHROMYCIN ANHYDROUS
     Indication: OSTEOMYELITIS
     Dosage: 100 MG, 1X/DAY
     Route: 065
  3. VANCOMYCIN HYDROCHLORIDE. [Suspect]
     Active Substance: VANCOMYCIN HYDROCHLORIDE
     Indication: WOUND INFECTION STAPHYLOCOCCAL
  4. CEFTIZOXIME [Concomitant]
     Active Substance: CEFTIZOXIME
     Indication: BACTERIAL INFECTION
     Dosage: 450 MG, 2X/DAY
     Route: 042
  5. VANCOMYCIN HYDROCHLORIDE. [Suspect]
     Active Substance: VANCOMYCIN HYDROCHLORIDE
     Indication: OSTEOMYELITIS
     Dosage: 166 MG, EVERY 12 HOURS
     Route: 042
  6. AZITHROMYCIN ANHYDROUS. [Concomitant]
     Active Substance: AZITHROMYCIN ANHYDROUS
     Indication: WOUND INFECTION STAPHYLOCOCCAL
  7. MEROPENEM. [Concomitant]
     Active Substance: MEROPENEM
     Indication: WOUND INFECTION STAPHYLOCOCCAL

REACTIONS (5)
  - Pneumonia [Recovered/Resolved]
  - Agranulocytosis [Recovered/Resolved]
  - Type IV hypersensitivity reaction [Recovered/Resolved]
  - Immune-mediated adverse reaction [Recovered/Resolved]
  - Pancytopenia [Recovered/Resolved]
